FAERS Safety Report 5492850-8 (Version None)
Quarter: 2007Q4

REPORT INFORMATION
  Report Type: 
  Country: None (occurrence: None)
  Receive Date: 20071023
  Receipt Date: 20061222
  Transmission Date: 20080405
  Serious: No
  Sender: FDA-Public Use
  Company Number: US-BRISTOL-MYERS SQUIBB COMPANY-13623988

PATIENT
  Age: 84 Year
  Sex: Female
  Weight: 31 kg

DRUGS (9)
  1. BUSPAR [Suspect]
  2. ABILIFY [Suspect]
  3. ARICEPT [Concomitant]
  4. REMERON [Concomitant]
  5. ATENOLOL [Concomitant]
  6. CATAPRES [Concomitant]
  7. DILANTIN [Concomitant]
  8. ACIPHEX [Concomitant]
  9. TYLENOL (CAPLET) [Concomitant]

REACTIONS (1)
  - POSTURE ABNORMAL [None]
